FAERS Safety Report 6171085-X (Version None)
Quarter: 2009Q2

REPORT INFORMATION
  Report Type: 
  Country: None (occurrence: None)
  Receive Date: 20090429
  Receipt Date: 20090417
  Transmission Date: 20091009
  Serious: Yes (Hospitalization)
  Sender: FDA-Public Use
  Company Number: PHHY2008MX15983

PATIENT
  Sex: Male

DRUGS (1)
  1. STALEVO 100 [Suspect]
     Indication: PARKINSON'S DISEASE
     Dosage: 4 TABS (200/100/25 MG)/DAY

REACTIONS (6)
  - ABASIA [None]
  - APHASIA [None]
  - COGNITIVE DISORDER [None]
  - MENINGIOMA [None]
  - PARALYSIS [None]
  - SURGERY [None]
